FAERS Safety Report 9815369 (Version 1)
Quarter: 2014Q1

REPORT INFORMATION
  Report Type: Spontaneous
  Country: DE (occurrence: DE)
  Receive Date: 20140114
  Receipt Date: 20140114
  Transmission Date: 20141002
  Serious: Yes (Death, Other)
  Sender: FDA-Public Use
  Company Number: DE-AMGEN-DEUSP2014001612

PATIENT
  Sex: Male

DRUGS (2)
  1. NEULASTA [Suspect]
     Indication: PROSTATE CANCER
     Dosage: UNK
     Route: 065
  2. CABAZITAXEL [Concomitant]
     Indication: PROSTATE CANCER
     Dosage: UNK

REACTIONS (1)
  - Neutropenia [Fatal]
